FAERS Safety Report 5325380-4 (Version None)
Quarter: 2007Q2

REPORT INFORMATION
  Report Type: 
  Country: None (occurrence: None)
  Receive Date: 20070509
  Receipt Date: 20070426
  Transmission Date: 20071010
  Serious: Yes (Death, Life-Threatening, Other)
  Sender: FDA-Public Use
  Company Number: US016412

PATIENT
  Age: 73 Year
  Sex: Female

DRUGS (11)
  1. TRISENOX [Suspect]
     Indication: ACUTE PROMYELOCYTIC LEUKAEMIA
     Dosage: 7.62 MG QD INTRAVENOUS DRIP
     Route: 041
     Dates: start: 20051020, end: 20051024
  2. TRISENOX [Suspect]
     Indication: ACUTE PROMYELOCYTIC LEUKAEMIA
     Dosage: 7.62 MG QD INTRAVENOUS DRIP
     Route: 041
     Dates: start: 20051026, end: 20051028
  3. TRISENOX [Suspect]
     Indication: ACUTE PROMYELOCYTIC LEUKAEMIA
     Dosage: 7.62 MG QD INTRAVENOUS DRIP
     Route: 041
     Dates: start: 20051107, end: 20051109
  4. ETOPOSIDE [Suspect]
     Dosage: 100 MG QD INTRAVENOUS DRIP
     Route: 041
     Dates: start: 20051024, end: 20051025
  5. TEICOPLANIN [Suspect]
     Dosage: INTRAVENOUS DRIP
     Route: 041
  6. NAFAMOSTAT MESILATE [Concomitant]
  7. MICONAZOLE [Concomitant]
  8. HYDROCORTISONE SODIUM SUCCINATE [Concomitant]
  9. FAMOTIDINE [Concomitant]
  10. FLUCONAZOLE [Concomitant]
  11. FUROSEMIDE [Concomitant]

REACTIONS (13)
  - ALTERED STATE OF CONSCIOUSNESS [None]
  - BLOOD BILIRUBIN INCREASED [None]
  - CEREBRAL HAEMORRHAGE [None]
  - CONDITION AGGRAVATED [None]
  - DIALYSIS [None]
  - DISSEMINATED INTRAVASCULAR COAGULATION [None]
  - HYPERGLYCAEMIA [None]
  - LEUKOCYTOSIS [None]
  - PULMONARY HAEMORRHAGE [None]
  - RENAL FAILURE ACUTE [None]
  - RESPIRATORY FAILURE [None]
  - SEPSIS [None]
  - WHITE BLOOD CELL COUNT DECREASED [None]
